FAERS Safety Report 17037855 (Version 3)
Quarter: 2020Q2

REPORT INFORMATION
  Report Type: Spontaneous
  Country: US (occurrence: US)
  Receive Date: 20191115
  Receipt Date: 20200402
  Transmission Date: 20200713
  Serious: No
  Sender: FDA-Public Use
  Company Number: US-LEO PHARMA-326374

PATIENT
  Sex: Female

DRUGS (1)
  1. PICATO [Suspect]
     Active Substance: INGENOL MEBUTATE
     Indication: SOLAR LENTIGO
     Route: 061
     Dates: start: 20191105, end: 20191105

REACTIONS (2)
  - Incorrect product administration duration [Unknown]
  - Application site vesicles [Recovered/Resolved]

NARRATIVE: CASE EVENT DATE: 20191106
